FAERS Safety Report 14982739 (Version 2)
Quarter: 2019Q2

REPORT INFORMATION
  Report Type: Spontaneous
  Country: US (occurrence: US)
  Receive Date: 20180607
  Receipt Date: 20190513
  Transmission Date: 20190711
  Serious: No
  Sender: FDA-Public Use
  Company Number: US-SA-2018SA147532

PATIENT
  Age: 64 Year
  Weight: 98.4 kg

DRUGS (28)
  1. CLONAZEPAM. [Concomitant]
     Active Substance: CLONAZEPAM
     Dosage: 1 DF, BID
     Route: 048
     Dates: start: 20180130
  2. CALCITRIOL. [Concomitant]
     Active Substance: CALCITRIOL
     Dosage: 1 DF, QD
     Route: 048
     Dates: start: 20180318
  3. FABRAZYME [Suspect]
     Active Substance: AGALSIDASE BETA
     Indication: ILL-DEFINED DISORDER
  4. VENLAFAXINE [Concomitant]
     Active Substance: VENLAFAXINE HYDROCHLORIDE
     Dosage: 1 DF, QD
     Route: 048
     Dates: start: 20180205
  5. BASAGLAR [Concomitant]
     Active Substance: INSULIN GLARGINE
  6. PANTOPRAZOLE [Concomitant]
     Active Substance: PANTOPRAZOLE
     Dosage: 1 DF, QD
     Route: 048
     Dates: start: 20180205
  7. ASPIRIN (E.C.) [Concomitant]
     Active Substance: ASPIRIN
     Dosage: 1 DF, QD
     Route: 048
     Dates: start: 20180205
  8. SEROQUEL [Concomitant]
     Active Substance: QUETIAPINE FUMARATE
     Dosage: 1 DF, QD
     Route: 048
     Dates: start: 20180312
  9. FABRAZYME [Suspect]
     Active Substance: AGALSIDASE BETA
     Indication: LIPIDOSIS
  10. LEVOFLOXACIN. [Concomitant]
     Active Substance: LEVOFLOXACIN
     Dosage: 1 DF, QD
     Route: 048
     Dates: start: 20180323
  11. METOPROLOL SUCCINATE. [Concomitant]
     Active Substance: METOPROLOL SUCCINATE
     Dosage: 1.5 DF, QD
     Route: 048
     Dates: start: 20180305
  12. NIFEDIPINE. [Concomitant]
     Active Substance: NIFEDIPINE
  13. LISINOPRIL. [Concomitant]
     Active Substance: LISINOPRIL
     Dosage: 1 DF, HS
     Route: 048
     Dates: start: 20180220
  14. DIPHENHYDRAMINE. [Concomitant]
     Active Substance: DIPHENHYDRAMINE
     Indication: ANAPHYLACTIC REACTION
     Dosage: 2.5 MG, PRN
     Route: 048
     Dates: start: 20180131
  15. STERILE WATER [Concomitant]
     Active Substance: WATER
     Dosage: UNK
     Route: 041
     Dates: start: 20180131
  16. EPINEPHRINE. [Concomitant]
     Active Substance: EPINEPHRINE
     Indication: ANAPHYLACTIC REACTION
     Dosage: 0.3 MG, PRN
     Route: 030
     Dates: start: 20180131
  17. ACYCLOVIR [ACICLOVIR] [Concomitant]
     Active Substance: ACYCLOVIR
     Dosage: 1 DF, QD
     Route: 048
     Dates: start: 20180323
  18. FABRAZYME [Suspect]
     Active Substance: AGALSIDASE BETA
     Indication: FABRY^S DISEASE
  19. CHLORTHALIDONE. [Concomitant]
     Active Substance: CHLORTHALIDONE
     Dosage: 1 DF, QD
     Route: 048
     Dates: start: 20180205
  20. NORMAL SALINE [Concomitant]
     Active Substance: SODIUM CHLORIDE
  21. FERROUS SULFATE. [Concomitant]
     Active Substance: FERROUS SULFATE
     Dosage: 1 DF, QD
     Route: 048
     Dates: start: 20180130
  22. FENOFIBRATE. [Concomitant]
     Active Substance: FENOFIBRATE
  23. HUMALOG [Concomitant]
     Active Substance: INSULIN LISPRO
  24. CRESTOR [Concomitant]
     Active Substance: ROSUVASTATIN CALCIUM
     Dosage: 1 DF, QD
     Route: 048
     Dates: start: 20180205
  25. TACROLIMUS. [Concomitant]
     Active Substance: TACROLIMUS
     Dosage: 2 DF, QD
     Route: 048
     Dates: start: 20180205
  26. SODIUM CHLORIDE. [Concomitant]
     Active Substance: SODIUM CHLORIDE
     Indication: FLUSHING
     Dosage: 0.9 %
     Route: 041
     Dates: start: 20180131
  27. FABRAZYME [Suspect]
     Active Substance: AGALSIDASE BETA
     Indication: ILL-DEFINED DISORDER
     Dosage: 0.96 MG, QOW
     Route: 041
  28. PREDNISONE. [Concomitant]
     Active Substance: PREDNISONE

REACTIONS (2)
  - Hypertension [Unknown]
  - Diarrhoea [Unknown]
